FAERS Safety Report 10775886 (Version 1)
Quarter: 2015Q1

REPORT INFORMATION
  Report Type: Other
  Country: US (occurrence: US)
  Receive Date: 20150209
  Receipt Date: 20150209
  Transmission Date: 20150721
  Serious: Yes (Death)
  Sender: FDA-Public Use
  Company Number: US-FRI-1000074278

PATIENT
  Age: 80 Year
  Sex: Male

DRUGS (2)
  1. METHYLENE CHLORIDE\TOLUENE. [Suspect]
     Active Substance: METHYLENE CHLORIDE\TOLUENE
  2. CITALOPRAM [Suspect]
     Active Substance: CITALOPRAM HYDROBROMIDE

REACTIONS (3)
  - Environmental exposure [Fatal]
  - Respiratory arrest [None]
  - Cardiac arrest [None]
